FAERS Safety Report 19464116 (Version 2)
Quarter: 2021Q3

REPORT INFORMATION
  Report Type: Spontaneous
  Country: DE (occurrence: DE)
  Receive Date: 20210625
  Receipt Date: 20210701
  Transmission Date: 20211014
  Serious: Yes (Life-Threatening, Hospitalization, Other)
  Sender: FDA-Public Use
  Company Number: DE-BAUSCH-BL-2021-021795

PATIENT
  Age: 41 Year
  Sex: Female
  Weight: 100 kg

DRUGS (46)
  1. DOXORUBICINE [DOXORUBICIN] [Suspect]
     Active Substance: DOXORUBICIN
     Dosage: 25 MG/M2
     Route: 065
     Dates: start: 20160113
  2. BACLOFEN. [Suspect]
     Active Substance: BACLOFEN
     Indication: PRODUCT USED FOR UNKNOWN INDICATION
     Dosage: 200 UG
     Route: 065
  3. GRANOCYTE [Suspect]
     Active Substance: LENOGRASTIM
     Indication: NEUTROPENIA
     Dosage: 1 DF, QD
     Route: 065
     Dates: start: 20160203, end: 20160205
  4. HYDROCHLOROTHIAZIDE/VALSARTAN [Suspect]
     Active Substance: HYDROCHLOROTHIAZIDE\VALSARTAN
     Dosage: UNK
     Route: 065
     Dates: start: 20160804
  5. VALSACOR COMP [Concomitant]
     Active Substance: HYDROCHLOROTHIAZIDE\VALSARTAN
     Indication: PRODUCT USED FOR UNKNOWN INDICATION
     Dosage: UNK
  6. CITALOPRAM [Concomitant]
     Active Substance: CITALOPRAM HYDROBROMIDE
     Indication: PRODUCT USED FOR UNKNOWN INDICATION
  7. MOTILIUM M [Concomitant]
     Active Substance: DOMPERIDONE MALEATE
     Indication: PRODUCT USED FOR UNKNOWN INDICATION
  8. PREDNISOLONE. [Suspect]
     Active Substance: PREDNISOLONE
     Indication: HODGKIN^S DISEASE
     Dosage: 80 MG, QD
     Route: 065
     Dates: start: 20160113, end: 20160126
  9. NEULASTA [Suspect]
     Active Substance: PEGFILGRASTIM
     Indication: NEUTROPENIA
     Dosage: UNK
     Route: 058
     Dates: start: 20151212, end: 20151212
  10. GRANOCYTE [Suspect]
     Active Substance: LENOGRASTIM
     Dosage: 1 DF, QD
     Route: 065
     Dates: start: 20160120, end: 201601
  11. CYCLOPHOSPHAMIDE. [Suspect]
     Active Substance: CYCLOPHOSPHAMIDE
     Indication: HODGKIN^S DISEASE
     Dosage: 750 MG/M2
     Route: 065
     Dates: start: 20160113
  12. HYDROCHLOROTHIAZIDE/VALSARTAN [Suspect]
     Active Substance: HYDROCHLOROTHIAZIDE\VALSARTAN
     Dosage: UNK
     Route: 065
     Dates: start: 20141014
  13. VINCRISTINE SULFATE. [Suspect]
     Active Substance: VINCRISTINE SULFATE
     Indication: HODGKIN^S DISEASE
     Dosage: 2 MG ABSOLUTE
     Route: 065
     Dates: start: 20160120
  14. VALSARTAN. [Concomitant]
     Active Substance: VALSARTAN
     Indication: HYPERTENSION
     Dosage: UNK
     Dates: start: 20130124
  15. MORPHINE [Concomitant]
     Active Substance: MORPHINE
     Indication: PRODUCT USED FOR UNKNOWN INDICATION
  16. BACLOFEN AL [Concomitant]
     Active Substance: BACLOFEN
     Indication: PRODUCT USED FOR UNKNOWN INDICATION
     Dosage: UNK
     Dates: start: 2015
  17. HYDROCHLOROTHIAZIDE/VALSARTAN [Suspect]
     Active Substance: HYDROCHLOROTHIAZIDE\VALSARTAN
     Dosage: UNK
     Route: 065
     Dates: start: 201410, end: 201704
  18. ETOPOSIDE. [Suspect]
     Active Substance: ETOPOSIDE
     Indication: HODGKIN^S DISEASE
     Dosage: 100 MG/M2
     Route: 065
     Dates: start: 20160113
  19. PALLADON [Concomitant]
     Active Substance: HYDROMORPHONE
     Indication: PRODUCT USED FOR UNKNOWN INDICATION
     Dosage: UNK
     Dates: end: 201511
  20. LYRICA [Concomitant]
     Active Substance: PREGABALIN
     Indication: PRODUCT USED FOR UNKNOWN INDICATION
     Dosage: UNK
     Dates: start: 2016
  21. MOVICOL [Concomitant]
     Active Substance: POLYETHYLENE GLYCOL 3350\POTASSIUM CHLORIDE\SODIUM BICARBONATE\SODIUM CHLORIDE
     Indication: PRODUCT USED FOR UNKNOWN INDICATION
  22. PANTOZOL [Concomitant]
     Active Substance: PANTOPRAZOLE SODIUM
     Indication: PRODUCT USED FOR UNKNOWN INDICATION
  23. BLEOMYCIN [Suspect]
     Active Substance: BLEOMYCIN SULFATE
     Dosage: 10 MG/M2
     Route: 065
     Dates: start: 20160120
  24. PROCARBAZINE [Suspect]
     Active Substance: PROCARBAZINE
     Indication: HODGKIN^S DISEASE
     Dosage: 100 MG/M2, QD
     Route: 065
     Dates: start: 20190113, end: 20190119
  25. HYDROCHLOROTHIAZIDE/VALSARTAN [Suspect]
     Active Substance: HYDROCHLOROTHIAZIDE\VALSARTAN
     Indication: HYPERTENSION
     Dosage: UNK
     Route: 065
     Dates: start: 20150415
  26. HYDROCHLOROTHIAZIDE/VALSARTAN [Suspect]
     Active Substance: HYDROCHLOROTHIAZIDE\VALSARTAN
     Dosage: UNK
     Route: 065
     Dates: start: 201407, end: 201407
  27. COTRIMOX [Concomitant]
     Active Substance: SULFAMETHOXAZOLE\TRIMETHOPRIM
     Indication: PRODUCT USED FOR UNKNOWN INDICATION
  28. VALSARTAN. [Concomitant]
     Active Substance: VALSARTAN
     Dosage: 80 MG
     Dates: start: 20140707
  29. TRANXILIUM [Concomitant]
     Active Substance: CLORAZEPATE DIPOTASSIUM
     Indication: PRODUCT USED FOR UNKNOWN INDICATION
  30. DICLOFENAC [Suspect]
     Active Substance: DICLOFENAC
     Indication: PRODUCT USED FOR UNKNOWN INDICATION
     Route: 065
  31. BLEOMYCIN [Suspect]
     Active Substance: BLEOMYCIN SULFATE
     Indication: HODGKIN^S DISEASE
     Dosage: 25 MG/M2, QOW
     Route: 065
     Dates: start: 20151027, end: 201512
  32. ACETYLSALICYLIC ACID [Suspect]
     Active Substance: ASPIRIN
     Indication: PRODUCT USED FOR UNKNOWN INDICATION
     Route: 065
  33. VALSARTAN. [Concomitant]
     Active Substance: VALSARTAN
     Dosage: 16012.5 MG
     Dates: start: 201407, end: 201410
  34. PARACETAMOL [Suspect]
     Active Substance: ACETAMINOPHEN
     Indication: PRODUCT USED FOR UNKNOWN INDICATION
     Route: 065
  35. HYDROCHLOROTHIAZIDE/VALSARTAN [Suspect]
     Active Substance: HYDROCHLOROTHIAZIDE\VALSARTAN
     Dosage: UNK
     Route: 065
     Dates: start: 20140707
  36. HYDROCHLOROTHIAZIDE/VALSARTAN [Suspect]
     Active Substance: HYDROCHLOROTHIAZIDE\VALSARTAN
     Dosage: UNK
     Route: 065
     Dates: start: 20170112
  37. HYDROCHLOROTHIAZIDE/VALSARTAN [Suspect]
     Active Substance: HYDROCHLOROTHIAZIDE\VALSARTAN
     Dosage: UNK
     Route: 065
     Dates: start: 20150611
  38. VALSARTAN. [Concomitant]
     Active Substance: VALSARTAN
     Dosage: UNK
     Dates: start: 201407, end: 201410
  39. DACARBAZINE. [Suspect]
     Active Substance: DACARBAZINE
     Indication: HODGKIN^S DISEASE
     Dosage: 375 MG/M2
     Route: 065
     Dates: start: 20151027, end: 201512
  40. DOXORUBICINE [DOXORUBICIN] [Suspect]
     Active Substance: DOXORUBICIN
     Indication: HODGKIN^S DISEASE
     Dosage: 25 MG/M2, QOW
     Route: 065
     Dates: start: 20151027, end: 201512
  41. VINBLASTINE [Suspect]
     Active Substance: VINBLASTINE
     Indication: HODGKIN^S DISEASE
     Dosage: 6 MG/M2, QOW
     Route: 065
     Dates: start: 20151027, end: 201512
  42. HYDROCHLOROTHIAZIDE/VALSARTAN [Suspect]
     Active Substance: HYDROCHLOROTHIAZIDE\VALSARTAN
     Dosage: UNK
     Route: 065
     Dates: start: 20160427
  43. IBUPROFEN. [Suspect]
     Active Substance: IBUPROFEN
     Indication: PRODUCT USED FOR UNKNOWN INDICATION
     Route: 065
  44. HYDROCHLOROTHIAZIDE/VALSARTAN [Suspect]
     Active Substance: HYDROCHLOROTHIAZIDE\VALSARTAN
     Dosage: UNK
     Route: 065
     Dates: start: 20150102
  45. HYDROCHLOROTHIAZIDE/VALSARTAN [Suspect]
     Active Substance: HYDROCHLOROTHIAZIDE\VALSARTAN
     Dosage: UNK
     Route: 065
     Dates: start: 20140707, end: 201410
  46. DIAZEPAM. [Concomitant]
     Active Substance: DIAZEPAM
     Indication: PRODUCT USED FOR UNKNOWN INDICATION

REACTIONS (69)
  - Tissue infiltration [Unknown]
  - Neutropenia [Recovering/Resolving]
  - Nausea [Recovering/Resolving]
  - Dyspnoea [Recovering/Resolving]
  - Monoplegia [Unknown]
  - Tremor [Unknown]
  - Fall [Recovered/Resolved]
  - Drug hypersensitivity [Unknown]
  - Speech disorder [Unknown]
  - Dysphagia [Unknown]
  - Pain in extremity [Recovering/Resolving]
  - Cough [Unknown]
  - Headache [Unknown]
  - Muscle spasticity [Unknown]
  - Psychogenic seizure [Unknown]
  - Fatigue [Unknown]
  - Myalgia [Unknown]
  - Dysaesthesia [Unknown]
  - Haematoma [Unknown]
  - Drug abuse [Unknown]
  - Neurological decompensation [Unknown]
  - Intervertebral disc disorder [Unknown]
  - Hypokinesia [Unknown]
  - Device malfunction [Unknown]
  - Drug intolerance [Unknown]
  - Klebsiella infection [Unknown]
  - General physical health deterioration [Unknown]
  - Pain [Recovering/Resolving]
  - Pneumonia [Unknown]
  - Pyrexia [Unknown]
  - Candida infection [Unknown]
  - Lymphadenopathy [Recovering/Resolving]
  - Sepsis [Unknown]
  - Vomiting [Recovering/Resolving]
  - Splenomegaly [Unknown]
  - Obesity [Unknown]
  - Hypochromic anaemia [Unknown]
  - Lung disorder [Unknown]
  - Sleep apnoea syndrome [Unknown]
  - Bone pain [Unknown]
  - Loss of consciousness [Unknown]
  - Pulmonary congestion [Unknown]
  - Fall [Recovered/Resolved]
  - Uterine enlargement [Unknown]
  - Inguinal hernia [Unknown]
  - Hyperhidrosis [Unknown]
  - Sleep disorder [Unknown]
  - Hypoaesthesia [Unknown]
  - Urinary tract infection [Unknown]
  - Hodgkin^s disease [Unknown]
  - Hyperpyrexia [Unknown]
  - Respiratory failure [Unknown]
  - Viral infection [Recovered/Resolved]
  - Basal ganglion degeneration [Unknown]
  - Renal cyst [Unknown]
  - Somnolence [Unknown]
  - Hepatic steatosis [Unknown]
  - Dizziness [Unknown]
  - Tachycardia [Unknown]
  - Anaesthesia [Unknown]
  - Spinal pain [Unknown]
  - Hypothyroidism [Unknown]
  - Red blood cell sedimentation rate increased [Unknown]
  - Back pain [Recovering/Resolving]
  - Abdominal tenderness [Unknown]
  - Tenderness [Unknown]
  - Arthralgia [Unknown]
  - Hyperventilation [Unknown]
  - Inflammation [Unknown]

NARRATIVE: CASE EVENT DATE: 2015
